FAERS Safety Report 16149337 (Version 2)
Quarter: 2019Q2

REPORT INFORMATION
  Report Type: Spontaneous
  Country: US (occurrence: US)
  Receive Date: 20190402
  Receipt Date: 20190624
  Transmission Date: 20190711
  Serious: No
  Sender: FDA-Public Use
  Company Number: US-PFIZER INC-2019141277

PATIENT
  Age: 10 Year
  Sex: Male

DRUGS (1)
  1. EUCRISA [Suspect]
     Active Substance: CRISABOROLE
     Dosage: UNK, 2X/DAY, (APPLY TO AFFECTED AREAS TWICE A DAY AFTER COMPLETING 2 WEEKS OF STEROID THERAPY)

REACTIONS (2)
  - Product dose omission [Unknown]
  - Condition aggravated [Unknown]
